FAERS Safety Report 4544799-2 (Version None)
Quarter: 2004Q4

REPORT INFORMATION
  Report Type: 
  Country: None (occurrence: None)
  Receive Date: 20041230
  Receipt Date: 20041227
  Transmission Date: 20050328
  Serious: Yes (Death)
  Sender: FDA-Public Use
  Company Number: US-JNJFOC-20041102537

PATIENT
  Age: 10 Week
  Sex: Male

DRUGS (4)
  1. ACETAMINOPHEN [Suspect]
     Dosage: 1 DOSE(S), ORAL
     Route: 048
     Dates: start: 20020101, end: 20020101
  2. DEXTROMETHORPHAN HYDROBROMIDE [Suspect]
  3. CHLORPHENIRAMINE TAB [Suspect]
     Dosage: ORAL
     Route: 048
  4. DIPHENHYDRAMINE (DIPHENHYDRAMINE) [Concomitant]

REACTIONS (4)
  - CYANOSIS [None]
  - DRUG TOXICITY [None]
  - INFANTILE SPITTING UP [None]
  - VICTIM OF HOMICIDE [None]
